FAERS Safety Report 6049172-6 (Version None)
Quarter: 2009Q1

REPORT INFORMATION
  Report Type: 
  Country: None (occurrence: None)
  Receive Date: 20090123
  Receipt Date: 20090112
  Transmission Date: 20090719
  Serious: Yes (Death)
  Sender: FDA-Public Use
  Company Number: CN-PFIZER INC-2009154884

PATIENT

DRUGS (4)
  1. SOLU-MEDROL [Suspect]
     Indication: LUNG INFECTION
     Route: 042
  2. SOLU-MEDROL [Suspect]
  3. AMINOPHYLLINE [Concomitant]
     Indication: LUNG INFECTION
  4. DEXAMETHASONE [Concomitant]
     Indication: LUNG INFECTION

REACTIONS (3)
  - GENERALISED OEDEMA [None]
  - MULTI-ORGAN FAILURE [None]
  - OEDEMA PERIPHERAL [None]
